FAERS Safety Report 7971447-1 (Version None)
Quarter: 2011Q4

REPORT INFORMATION
  Report Type: 
  Country: None (occurrence: None)
  Receive Date: 20111212
  Receipt Date: 20111208
  Transmission Date: 20120403
  Serious: No
  Sender: FDA-Public Use
  Company Number: US-PFIZER INC-2011300533

PATIENT
  Sex: Female
  Weight: 49.9 kg

DRUGS (1)
  1. PREMPHASE (PREMARIN;CYCRIN 14/14) [Suspect]
     Indication: OSTEOPOROSIS
     Dosage: 0.625 MG, 1X/DAY
     Route: 048
     Dates: start: 20111122, end: 20111203

REACTIONS (1)
  - VOMITING [None]
